FAERS Safety Report 23388955 (Version 1)
Quarter: 2024Q1

REPORT INFORMATION
  Report Type: Spontaneous
  Country: IE (occurrence: IE)
  Receive Date: 20240110
  Receipt Date: 20240110
  Transmission Date: 20240409
  Serious: Yes (Other)
  Sender: FDA-Public Use
  Company Number: IE-CELLTRION HEALTHCARE HUNGARY KFT-2023IE017452

PATIENT
  Age: 25 Year
  Sex: Male

DRUGS (2)
  1. ADALIMUMAB [Suspect]
     Active Substance: ADALIMUMAB\ISOPROPYL ALCOHOL
     Indication: Hidradenitis
     Dosage: UNK
     Route: 058
  2. ADALIMUMAB [Suspect]
     Active Substance: ADALIMUMAB\ISOPROPYL ALCOHOL
     Indication: Crohn^s disease

REACTIONS (3)
  - Testis cancer [Unknown]
  - Testis cancer recurrent [Unknown]
  - Condition aggravated [Unknown]
